FAERS Safety Report 4598706-7 (Version None)
Quarter: 2005Q1

REPORT INFORMATION
  Report Type: 
  Country: None (occurrence: None)
  Receive Date: 20050301
  Receipt Date: 20050301
  Transmission Date: 20050727
  Serious: Yes (Disabling)
  Sender: FDA-Public Use
  Company Number: None

PATIENT
  Age: 44 Year
  Sex: Female
  Weight: 53.5244 kg

DRUGS (1)
  1. AVONEX [Suspect]
     Indication: LEUKOENCEPHALOPATHY
     Dosage: 1 IM INJECT.  EVERY FRIDAY
     Dates: start: 20040701, end: 20050331

REACTIONS (1)
  - LEUKOENCEPHALOPATHY [None]
